FAERS Safety Report 8588184-5 (Version None)
Quarter: 2012Q3

REPORT INFORMATION
  Report Type: 
  Country: None (occurrence: None)
  Receive Date: 20120813
  Receipt Date: 20120426
  Transmission Date: 20120928
  Serious: Yes (Other)
  Sender: FDA-Public Use
  Company Number: IT-CELGENEUS-083-21660-12042952

PATIENT
  Age: 48 Year
  Sex: Female
  Weight: 64 kg

DRUGS (1)
  1. ABRAXANE [Suspect]
     Indication: BREAST CANCER
     Route: 041
     Dates: start: 20111101

REACTIONS (13)
  - RASH [None]
  - CARDIOTOXICITY [None]
  - STOMATITIS [None]
  - BONE PAIN [None]
  - ANAEMIA [None]
  - NEUROPATHY PERIPHERAL [None]
  - DIARRHOEA [None]
  - VOMITING [None]
  - NAUSEA [None]
  - NEUTROPENIA [None]
  - THROMBOCYTOPENIA [None]
  - PALMAR-PLANTAR ERYTHRODYSAESTHESIA SYNDROME [None]
  - NEUROTOXICITY [None]
